FAERS Safety Report 9651518 (Version 1)
Quarter: 2013Q4

REPORT INFORMATION
  Report Type: Spontaneous
  Country: None (occurrence: US)
  Receive Date: 20131029
  Receipt Date: 20131029
  Transmission Date: 20140711
  Serious: No
  Sender: FDA-Public Use
  Company Number: US-ENDO PHARMACEUTICALS INC.-HCDA20120033

PATIENT
  Sex: Male

DRUGS (1)
  1. HYDROCODONE/ACETAMINOPHEN 7.5MG/750MG [Suspect]
     Indication: BACK PAIN
     Dosage: UNKNOWN
     Route: 048

REACTIONS (2)
  - Drug ineffective [Recovered/Resolved]
  - Somnolence [Unknown]
